FAERS Safety Report 11201312 (Version 2)
Quarter: 2015Q3

REPORT INFORMATION
  Report Type: Spontaneous
  Country: CA (occurrence: CA)
  Receive Date: 20150619
  Receipt Date: 20150703
  Transmission Date: 20151125
  Serious: Yes (Hospitalization, Other)
  Sender: FDA-Public Use
  Company Number: CA-ASTRAZENECA-2015SE59165

PATIENT
  Age: 81 Year
  Sex: Female

DRUGS (9)
  1. FORXIGA [Suspect]
     Active Substance: DAPAGLIFLOZIN
     Route: 048
     Dates: start: 20150330, end: 20150412
  2. ATIVAN [Concomitant]
     Active Substance: LORAZEPAM
     Dosage: 0.5 MG AT BEDTIME WHEN NECESSARY ALONG WITH HER LANTUS AND HUMALOG
     Dates: start: 2006
  3. COVERSYL [Concomitant]
     Active Substance: PERINDOPRIL
  4. PROLENE [Concomitant]
     Route: 030
  5. HUMALOG [Concomitant]
     Active Substance: INSULIN LISPRO
  6. LANTUS [Concomitant]
     Active Substance: INSULIN GLARGINE
     Dosage: 15 UNITS AT BEDTIME 3 TIMES PER DAY MEALTIME INSULIN 6 UNITS
  7. LIPITOR [Concomitant]
     Active Substance: ATORVASTATIN CALCIUM
  8. LANTUS [Concomitant]
     Active Substance: INSULIN GLARGINE
     Dosage: 5 UNITS
  9. LANTUS [Concomitant]
     Active Substance: INSULIN GLARGINE
     Dosage: INCREASED TO 7 UNITS

REACTIONS (3)
  - Metabolic acidosis [Unknown]
  - Nausea [Unknown]
  - Vomiting [Unknown]
